FAERS Safety Report 11964163 (Version 1)
Quarter: 2016Q1

REPORT INFORMATION
  Report Type: Spontaneous
  Country: US (occurrence: None)
  Receive Date: 20160121
  Receipt Date: 20160121
  Transmission Date: 20160526
  Serious: Yes (Other)
  Sender: FDA-Public Use
  Company Number: None

PATIENT
  Age: 74 Year
  Sex: Male
  Weight: 78.02 kg

DRUGS (10)
  1. DOXYCYCLINE. [Concomitant]
     Active Substance: DOXYCYCLINE
  2. NASONEX [Concomitant]
     Active Substance: MOMETASONE FUROATE
  3. ASPIRIN. [Concomitant]
     Active Substance: ASPIRIN
  4. FISH OIL [Concomitant]
     Active Substance: FISH OIL
  5. AZALASTINE [Concomitant]
  6. LOVASTATIN. [Concomitant]
     Active Substance: LOVASTATIN
  7. VIT. D [Concomitant]
  8. BENADRYL [Concomitant]
     Active Substance: DIPHENHYDRAMINE HYDROCHLORIDE
  9. SOOLANTRA [Suspect]
     Active Substance: IVERMECTIN
     Indication: ROSACEA
     Dosage: APPLY ONCE DAILY FACE  ONCE DAILY  APPLIED TO A SURFACE, USUALLY THE SKIN
     Dates: start: 20150324, end: 20150625
  10. LORAZEPAM. [Concomitant]
     Active Substance: LORAZEPAM

REACTIONS (2)
  - Periodontitis [None]
  - Tooth abscess [None]

NARRATIVE: CASE EVENT DATE: 20150625
